FAERS Safety Report 12994155 (Version 1)
Quarter: 2016Q4

REPORT INFORMATION
  Report Type: Spontaneous
  Country: US (occurrence: US)
  Receive Date: 20161201
  Receipt Date: 20161201
  Transmission Date: 20170207
  Serious: Yes (Death)
  Sender: FDA-Public Use
  Company Number: None

PATIENT
  Age: 82 Year
  Sex: Male
  Weight: 84.15 kg

DRUGS (2)
  1. CITALOPRAM [Suspect]
     Active Substance: CITALOPRAM HYDROBROMIDE
     Indication: SLEEP DISORDER
     Route: 048
     Dates: start: 20160922, end: 20160927
  2. FISH OIL [Concomitant]
     Active Substance: FISH OIL

REACTIONS (4)
  - Confusional state [None]
  - Hallucination [None]
  - Asphyxia [None]
  - Completed suicide [None]

NARRATIVE: CASE EVENT DATE: 20160928
